FAERS Safety Report 10361121 (Version 2)
Quarter: 2014Q3

REPORT INFORMATION
  Report Type: Spontaneous
  Country: GB (occurrence: None)
  Receive Date: 20140731
  Receipt Date: 20140814
  Transmission Date: 20150326
  Serious: Yes (Other)
  Sender: FDA-Public Use
  Company Number: GB-016557

PATIENT
  Sex: Female

DRUGS (1)
  1. PROPESS ( PROPESS) 10 MG (NOT SPECIFIED) [Suspect]
     Active Substance: DINOPROSTONE
     Indication: LABOUR INDUCTION
     Dosage: 10 MG TOTAL VAGINAL
     Route: 067

REACTIONS (2)
  - Exposure during pregnancy [None]
  - Caesarean section [None]
